FAERS Safety Report 4270083-0 (Version None)
Quarter: 2004Q1

REPORT INFORMATION
  Report Type: 
  Country: None (occurrence: None)
  Receive Date: 20040114
  Receipt Date: 20030202
  Transmission Date: 20041129
  Serious: No
  Sender: FDA-Public Use
  Company Number: US-GLAXOSMITHKLINE-A0396494A

PATIENT
  Age: 45 Year
  Sex: Female
  Weight: 65.9 kg

DRUGS (2)
  1. WELLBUTRIN [Suspect]
     Indication: DEPRESSION
     Dosage: 150MG TWICE PER DAY
     Route: 048
  2. PROVIGIL [Suspect]
     Indication: NARCOLEPSY
     Dosage: 200MG PER DAY
     Route: 048
     Dates: start: 20020909

REACTIONS (3)
  - DEPRESSION [None]
  - DRUG INTERACTION [None]
  - THERAPEUTIC RESPONSE DECREASED [None]
